FAERS Safety Report 19420169 (Version 1)
Quarter: 2021Q2

REPORT INFORMATION
  Report Type: Spontaneous
  Country: NL (occurrence: FR)
  Receive Date: 20210615
  Receipt Date: 20210615
  Transmission Date: 20210717
  Serious: Yes (Other)
  Sender: FDA-Public Use
  Company Number: FR-FRESENIUS KABI-FK202105840

PATIENT
  Age: 63 Year
  Sex: Female
  Weight: 61 kg

DRUGS (11)
  1. PACLITAXEL (MANUFACTURER UNKNOWN) [Suspect]
     Active Substance: PACLITAXEL
     Indication: OVARIAN CANCER RECURRENT
     Dosage: 14 DOSES AT D1, D8, D15 (CYCLES OF 28 DAYS)
     Route: 042
     Dates: start: 20170629, end: 20171205
  2. PACLITAXEL (MANUFACTURER UNKNOWN) [Suspect]
     Active Substance: PACLITAXEL
     Dosage: 6 CURES
     Route: 042
     Dates: start: 20140808, end: 20141114
  3. OLAPARIB. [Suspect]
     Active Substance: OLAPARIB
     Dosage: 400MG MORNING AND NIGHT EVERYDAY
     Route: 048
     Dates: start: 201712, end: 202009
  4. BEVACIZUMAB. [Suspect]
     Active Substance: BEVACIZUMAB
     Indication: OVARIAN CANCER RECURRENT
     Dosage: 23 CURES
     Route: 042
     Dates: start: 20160211, end: 20170530
  5. CARBOPLATIN (MANUFACTURER UNKNOWN) [Suspect]
     Active Substance: CARBOPLATIN
     Dosage: 6 CURES
     Route: 042
     Dates: start: 20170629, end: 20171128
  6. GEMCITABINE. [Suspect]
     Active Substance: GEMCITABINE
     Indication: OVARIAN CANCER RECURRENT
     Dosage: 7 CURES
     Route: 042
     Dates: start: 20160211, end: 20160503
  7. OLAPARIB. [Suspect]
     Active Substance: OLAPARIB
     Indication: OVARIAN CANCER RECURRENT
     Dosage: NOT FILLED OUT
     Route: 048
     Dates: start: 201411, end: 201502
  8. CARBOPLATIN (MANUFACTURER UNKNOWN) [Suspect]
     Active Substance: CARBOPLATIN
     Dosage: 4 CURES
     Route: 042
     Dates: start: 20160211, end: 20160503
  9. PEGYLATED LIPOSOMAL DOXORUBICIN HYDROCHLORIDE [Suspect]
     Active Substance: DOXORUBICIN HYDROCHLORIDE
     Indication: OVARIAN CANCER RECURRENT
     Dosage: 4 CURES?CAELYX 2 MG/ML, SOLUTION TO DILUTE FOR INFUSION
     Route: 042
     Dates: start: 20200917, end: 20201210
  10. CARBOPLATIN (MANUFACTURER UNKNOWN) [Suspect]
     Active Substance: CARBOPLATIN
     Indication: OVARIAN CANCER RECURRENT
     Dosage: 4 CURES
     Route: 042
     Dates: start: 20200917, end: 20201210
  11. CARBOPLATIN (MANUFACTURER UNKNOWN) [Suspect]
     Active Substance: CARBOPLATIN
     Dosage: 6 CURES
     Route: 042
     Dates: start: 20140801, end: 20141114

REACTIONS (1)
  - Myelodysplastic syndrome [Not Recovered/Not Resolved]

NARRATIVE: CASE EVENT DATE: 20210125
